FAERS Safety Report 11267298 (Version 2)
Quarter: 2017Q1

REPORT INFORMATION
  Report Type: Spontaneous
  Country: US (occurrence: US)
  Receive Date: 20150713
  Receipt Date: 20170202
  Transmission Date: 20170428
  Serious: Yes (Hospitalization, Other)
  Sender: FDA-Public Use
  Company Number: US-ELI_LILLY_AND_COMPANY-US201507001626

PATIENT
  Sex: Female

DRUGS (2)
  1. CYMBALTA [Suspect]
     Active Substance: DULOXETINE HYDROCHLORIDE
     Indication: DEPRESSION
  2. CYMBALTA [Suspect]
     Active Substance: DULOXETINE HYDROCHLORIDE
     Indication: PAIN
     Dosage: 60 MG, QD
     Route: 048
     Dates: start: 20110607

REACTIONS (27)
  - Disturbance in attention [Unknown]
  - Pyrexia [Unknown]
  - Nausea [Unknown]
  - Nightmare [Unknown]
  - Affect lability [Unknown]
  - Headache [Unknown]
  - Paraesthesia [Unknown]
  - Dysphoria [Unknown]
  - Muscle spasms [Unknown]
  - Asthenia [Unknown]
  - Lethargy [Unknown]
  - Musculoskeletal stiffness [Unknown]
  - Sensory disturbance [Unknown]
  - Confusional state [Unknown]
  - Panic attack [Unknown]
  - Mood swings [Unknown]
  - Irritability [Unknown]
  - Tremor [Unknown]
  - Myalgia [Unknown]
  - Drug withdrawal syndrome [Unknown]
  - Dizziness [Unknown]
  - Chills [Unknown]
  - Anxiety [Unknown]
  - Insomnia [Unknown]
  - Vertigo [Unknown]
  - Sleep disorder [Unknown]
  - Agitation [Unknown]
